FAERS Safety Report 9938597 (Version 2)
Quarter: 2014Q1

REPORT INFORMATION
  Report Type: Report from Study
  Country: CA (occurrence: CA)
  Receive Date: 20140303
  Receipt Date: 20140310
  Transmission Date: 20141002
  Serious: Yes (Hospitalization)
  Sender: FDA-Public Use
  Company Number: CA-JNJFOC-20140217384

PATIENT
  Age: 19 Year
  Sex: Female

DRUGS (1)
  1. SIMPONI [Suspect]
     Indication: COLITIS ULCERATIVE
     Route: 058
     Dates: start: 20131223, end: 20140225

REACTIONS (1)
  - Colectomy [Unknown]
